FAERS Safety Report 8083929-5 (Version None)
Quarter: 2012Q1

REPORT INFORMATION
  Report Type: 
  Country: None (occurrence: None)
  Receive Date: 20120128
  Receipt Date: 20110121
  Transmission Date: 20120608
  Serious: Yes (Other)
  Sender: FDA-Public Use
  Company Number: US-ABBOTT-11P-163-0697361-00

PATIENT
  Sex: Female
  Weight: 81.72 kg

DRUGS (12)
  1. ZOLOFT [Concomitant]
     Indication: PRODUCT USED FOR UNKNOWN INDICATION
  2. ATIVAN [Concomitant]
     Indication: PRODUCT USED FOR UNKNOWN INDICATION
     Dosage: TID PRN
  3. SEROQUEL [Concomitant]
     Indication: PRODUCT USED FOR UNKNOWN INDICATION
     Dosage: Q HS
  4. VENTOLIN [Concomitant]
     Indication: PRODUCT USED FOR UNKNOWN INDICATION
     Dosage: PRN
     Route: 055
  5. VITAMIN D [Concomitant]
     Indication: HYPOVITAMINOSIS
  6. HUMIRA [Suspect]
     Indication: CROHN'S DISEASE
     Dates: start: 20101101
  7. PRILOSEC [Concomitant]
     Indication: PRODUCT USED FOR UNKNOWN INDICATION
  8. TAGAMET [Concomitant]
     Indication: PRODUCT USED FOR UNKNOWN INDICATION
     Dosage: Q HS
  9. HUMIRA [Suspect]
     Indication: PSORIASIS
     Dates: start: 20100801, end: 20101101
  10. COMPAZINE [Concomitant]
     Indication: PRODUCT USED FOR UNKNOWN INDICATION
     Dosage: PRN - PT REPORTS DAILY USE
  11. MIRENA [Concomitant]
     Indication: CONTRACEPTION
     Route: 015
  12. MORPHINE [Concomitant]
     Indication: PAIN
     Dosage: EVERY 8 HRS, PRN

REACTIONS (4)
  - DRUG INEFFECTIVE [None]
  - PROCTALGIA [None]
  - INSOMNIA [None]
  - RECTAL ABSCESS [None]
